FAERS Safety Report 16165733 (Version 1)
Quarter: 2019Q2

REPORT INFORMATION
  Report Type: Spontaneous
  Country: US (occurrence: US)
  Receive Date: 20190405
  Receipt Date: 20190405
  Transmission Date: 20190711
  Serious: Yes (Death)
  Sender: FDA-Public Use
  Company Number: US-SENTYNL THERAPEUTICS, INC.  -2065422

PATIENT
  Age: 63 Year
  Sex: Male
  Weight: 97.27 kg

DRUGS (1)
  1. ABSTRAL [Suspect]
     Active Substance: FENTANYL CITRATE
     Indication: PAIN
     Route: 060
     Dates: start: 201512, end: 201901

REACTIONS (1)
  - Death [Fatal]

NARRATIVE: CASE EVENT DATE: 20190106
